FAERS Safety Report 12242347 (Version 1)
Quarter: 2016Q2

REPORT INFORMATION
  Report Type: Spontaneous
  Country: US (occurrence: US)
  Receive Date: 20160406
  Receipt Date: 20160406
  Transmission Date: 20160815
  Serious: No
  Sender: FDA-Public Use
  Company Number: PHEH2016US008151

PATIENT
  Sex: Female

DRUGS (2)
  1. AMLODIPINE, HYDROCHLOROTHIAZIDE, VALSARTAN [Suspect]
     Active Substance: AMLODIPINE\HYDROCHLOROTHIAZIDE\VALSARTAN
     Indication: PRODUCT USED FOR UNKNOWN INDICATION
     Route: 065
  2. AMLODIPINE, HYDROCHLOROTHIAZIDE, VALSARTAN [Suspect]
     Active Substance: AMLODIPINE\HYDROCHLOROTHIAZIDE\VALSARTAN
     Dosage: TOOK MEDICATION EVERY OTHER DAY

REACTIONS (1)
  - Feeling abnormal [Unknown]
